FAERS Safety Report 16411497 (Version 2)
Quarter: 2019Q2

REPORT INFORMATION
  Report Type: Spontaneous
  Country: JP (occurrence: JP)
  Receive Date: 20190610
  Receipt Date: 20190620
  Transmission Date: 20190711
  Serious: Yes (Other)
  Sender: FDA-Public Use
  Company Number: JP-PFIZER INC-2019167362

PATIENT
  Age: 75 Year
  Sex: Female

DRUGS (7)
  1. CALONAL [Concomitant]
     Active Substance: ACETAMINOPHEN
     Dosage: 1200 MG, (DEVIDED INTO 3 TIMES A DAY)
  2. KEISHIBUKURYOGAN [Concomitant]
     Active Substance: HERBALS
     Dosage: 7.5 G, (DIVIDED INTO 3 TIMES A DAY)
  3. HIRUDOID [Concomitant]
     Active Substance: GLYCOSAMINOGLYCANS
     Dosage: 4 BOTTLES
  4. LYRICA [Concomitant]
     Active Substance: PREGABALIN
     Dosage: 50 MG, DAILY
     Route: 048
  5. GOSHAJINKIGAN [Concomitant]
     Active Substance: HERBALS
     Dosage: 7.5 G, (DIVIDED INTO 3 TIMES A DAY)
  6. VYNDAQEL [Suspect]
     Active Substance: TAFAMIDIS MEGLUMINE
     Indication: HEREDITARY NEUROPATHIC AMYLOIDOSIS
     Dosage: 20 MG, 1X/DAY
     Route: 048
     Dates: start: 20190405
  7. ZETIA [Concomitant]
     Active Substance: EZETIMIBE

REACTIONS (10)
  - Headache [Recovering/Resolving]
  - Diarrhoea [Recovered/Resolved]
  - Vision blurred [Unknown]
  - Nausea [Recovered/Resolved]
  - Constipation [Unknown]
  - Retinal haemorrhage [Unknown]
  - Swelling [Unknown]
  - Decreased appetite [Unknown]
  - Intraocular pressure increased [Recovered/Resolved]
  - Hypoaesthesia [Unknown]

NARRATIVE: CASE EVENT DATE: 20190406
